FAERS Safety Report 4635385-4 (Version None)
Quarter: 2005Q2

REPORT INFORMATION
  Report Type: 
  Country: None (occurrence: None)
  Receive Date: 20050414
  Receipt Date: 20050411
  Transmission Date: 20051028
  Serious: Yes (Death)
  Sender: FDA-Public Use
  Company Number: FR-SANOFI-SYNTHELABO-F01200500576

PATIENT
  Sex: Female

DRUGS (3)
  1. OXALIPLATIN [Suspect]
     Indication: OESOPHAGEAL CARCINOMA
     Route: 042
  2. FLUOROURACIL [Suspect]
     Route: 042
  3. LEUCOVORIN CALCIUM [Suspect]
     Route: 042

REACTIONS (6)
  - ARTERIAL HAEMORRHAGE [None]
  - BRADYCARDIA [None]
  - FISTULA [None]
  - MALIGNANT NEOPLASM PROGRESSION [None]
  - OESOPHAGEAL CARCINOMA [None]
  - OESOPHAGEAL DISORDER [None]
